FAERS Safety Report 13681675 (Version 1)
Quarter: 2017Q2

REPORT INFORMATION
  Report Type: Spontaneous
  Country: US (occurrence: US)
  Receive Date: 20170622
  Receipt Date: 20170622
  Transmission Date: 20170830
  Serious: Yes (Disabling)
  Sender: FDA-Public Use
  Company Number: None

PATIENT
  Age: 64 Year
  Sex: Female
  Weight: 58.5 kg

DRUGS (5)
  1. MULTI VITAMIN [Concomitant]
     Active Substance: VITAMINS
  2. VITAMIN D3 [Concomitant]
     Active Substance: CHOLECALCIFEROL
  3. CLONAZEPAM. [Suspect]
     Active Substance: CLONAZEPAM
     Indication: ANXIETY
     Dosage: ?          QUANTITY:1 TABLET(S);?
     Route: 048
     Dates: start: 20090615, end: 20170602
  4. VITAMIN B COMPLEX [Concomitant]
     Active Substance: CYANOCOBALAMIN\DEXPANTHENOL\NIACINAMIDE\PYRIDOXINE HYDROCHLORIDE\RIBOFLAVIN 5^-PHOSPHATE SODIUM\THIAMINE HYDROCHLORIDE\VITAMIN B COMPLEX
  5. FISH OIL [Concomitant]
     Active Substance: FISH OIL

REACTIONS (37)
  - Central nervous system stimulation [None]
  - Hyperhidrosis [None]
  - Dizziness [None]
  - Hypoaesthesia [None]
  - Cognitive disorder [None]
  - Joint swelling [None]
  - Drug use disorder [None]
  - Hot flush [None]
  - Panic attack [None]
  - Decreased appetite [None]
  - Agitation [None]
  - Dry eye [None]
  - Restless legs syndrome [None]
  - Nausea [None]
  - Arthralgia [None]
  - Photophobia [None]
  - Intrusive thoughts [None]
  - Sensory disturbance [None]
  - Tremor [None]
  - Palpitations [None]
  - Insomnia [None]
  - Nervousness [None]
  - Depression [None]
  - Nasal dryness [None]
  - Dyspnoea [None]
  - Feeling abnormal [None]
  - Joint warmth [None]
  - Dry mouth [None]
  - Myalgia [None]
  - Muscle tightness [None]
  - Temperature regulation disorder [None]
  - Hyperacusis [None]
  - Motion sickness [None]
  - Anxiety [None]
  - Fatigue [None]
  - Paraesthesia [None]
  - Hypertonic bladder [None]

NARRATIVE: CASE EVENT DATE: 20151025
